FAERS Safety Report 5918284-7 (Version None)
Quarter: 2008Q4

REPORT INFORMATION
  Report Type: 
  Country: None (occurrence: None)
  Receive Date: 20081010
  Receipt Date: 20081003
  Transmission Date: 20090506
  Serious: Yes (Other)
  Sender: FDA-Public Use
  Company Number: CHPA2008US16627

PATIENT
  Age: 45 Year
  Sex: Female
  Weight: 68 kg

DRUGS (1)
  1. EXCEDRIN EXTRA STRENGTH (NCH) (CAFFEINE CITRATE, ACETYLSALICYLIC ACID, [Suspect]
     Indication: HEADACHE
     Dosage: 2 DF, QD, ORAL
     Route: 048
     Dates: start: 20081002, end: 20081002

REACTIONS (5)
  - DRUG TOXICITY [None]
  - HYPERVENTILATION [None]
  - NAUSEA [None]
  - OVERDOSE [None]
  - TREMOR [None]
